FAERS Safety Report 8015436-X (Version None)
Quarter: 2011Q4

REPORT INFORMATION
  Report Type: 
  Country: None (occurrence: None)
  Receive Date: 20111230
  Receipt Date: 20111223
  Transmission Date: 20120403
  Serious: Yes (Other)
  Sender: FDA-Public Use
  Company Number: AR-BRISTOL-MYERS SQUIBB COMPANY-16315624

PATIENT
  Age: 52 Year
  Sex: Male
  Weight: 150 kg

DRUGS (1)
  1. SPRYCEL [Suspect]

REACTIONS (2)
  - BLOOD TESTOSTERONE DECREASED [None]
  - TESTICULAR ATROPHY [None]
